FAERS Safety Report 6460568-0 (Version None)
Quarter: 2009Q4

REPORT INFORMATION
  Report Type: 
  Country: None (occurrence: None)
  Receive Date: 20091130
  Receipt Date: 20091117
  Transmission Date: 20100525
  Serious: Yes (Hospitalization)
  Sender: FDA-Public Use
  Company Number: JP-EISAI INC.-E3810-02847-SPO-JP

PATIENT
  Sex: Female

DRUGS (13)
  1. PARIET (RABEPRAZOLE) [Suspect]
     Indication: REFLUX OESOPHAGITIS
     Route: 048
     Dates: start: 20090302, end: 20090511
  2. KEISHI-BUKURYO-GAN [Concomitant]
     Indication: RHEUMATOID ARTHRITIS
     Route: 048
  3. PROGRAF [Concomitant]
     Indication: RHEUMATOID ARTHRITIS
     Route: 048
  4. DIOVAN [Concomitant]
     Indication: HYPERTENSION
     Route: 048
  5. PREDNISOLONE [Concomitant]
     Indication: RHEUMATOID ARTHRITIS
     Route: 048
  6. PREDNISOLONE [Concomitant]
     Route: 048
  7. ERYTHROCIN LACTOBIONATE [Concomitant]
     Indication: DIFFUSE PANBRONCHIOLITIS
     Route: 048
  8. ERYTHROCIN LACTOBIONATE [Concomitant]
  9. ASPARA-CA [Concomitant]
     Indication: OSTEOPOROSIS
     Route: 048
  10. RHEUMATREX [Concomitant]
     Indication: RHEUMATOID ARTHRITIS
     Route: 048
  11. MUCOSOLVAN [Concomitant]
     Route: 048
  12. ALFAROL [Concomitant]
     Indication: OSTEOPOROSIS
     Route: 048
  13. EPADEL [Concomitant]
     Indication: RHEUMATOID ARTHRITIS
     Route: 048

REACTIONS (2)
  - ANAEMIA [None]
  - WHITE BLOOD CELL COUNT DECREASED [None]
